FAERS Safety Report 9605571 (Version 1)
Quarter: 2013Q4

REPORT INFORMATION
  Report Type: Spontaneous
  Country: US (occurrence: US)
  Receive Date: 20131008
  Receipt Date: 20131008
  Transmission Date: 20140711
  Serious: No
  Sender: FDA-Public Use
  Company Number: US-PFIZER INC-2013286632

PATIENT
  Age: 62 Year
  Sex: Female
  Weight: 74.38 kg

DRUGS (15)
  1. GABAPENTIN [Suspect]
     Indication: DIABETIC NEPHROPATHY
     Dosage: 1800 MG, DAILY
     Route: 048
  2. GABAPENTIN [Suspect]
     Indication: FIBROMYALGIA
  3. TIZANIDINE HYDROCHLORIDE [Suspect]
     Indication: NEURALGIA
     Dosage: 4 MG, DAILY
     Route: 048
  4. GLYBURIDE [Concomitant]
     Indication: DIABETES MELLITUS
     Dosage: 12 MG, DAILY
     Route: 048
  5. PIOGLITAZONE HYDROCHLORIDE [Concomitant]
     Indication: DIABETES MELLITUS
     Dosage: 45 MG, DAILY
     Route: 048
  6. LOVASTATIN [Concomitant]
     Indication: BLOOD CHOLESTEROL INCREASED
     Dosage: 40 MG, DAILY
     Route: 048
  7. FUROSEMIDE [Concomitant]
     Indication: OEDEMA PERIPHERAL
     Dosage: 80 MG, DAILY
     Route: 048
  8. BUPROPION HYDROCHLORIDE [Concomitant]
     Indication: BIPOLAR DISORDER
     Dosage: 300 MG, DAILY
     Route: 048
  9. LORAZEPAM [Concomitant]
     Indication: ANXIETY
     Dosage: 1 MG, 2X/DAY
  10. KLOR-CON [Concomitant]
     Indication: HYPOKALAEMIA
     Dosage: 20 MG, 3X/DAY
  11. NABUMETONE [Concomitant]
     Indication: ARTHRITIS
     Dosage: 750 MG, 2X/DAY
  12. ACYCLOVIR [Concomitant]
     Indication: ORAL FUNGAL INFECTION
     Dosage: 400 MG, DAILY
  13. ESTRADIOL [Concomitant]
     Indication: HOT FLUSH
     Dosage: UNK, 1X/DAY
  14. ESTRADIOL [Concomitant]
     Indication: NIGHT SWEATS
  15. ROPINIROLE HYDROCHLORIDE [Concomitant]
     Indication: RESTLESS LEGS SYNDROME
     Dosage: 12 MG, DAILY
     Route: 048

REACTIONS (2)
  - Pain [Unknown]
  - Drug ineffective [Unknown]
